FAERS Safety Report 25253420 (Version 1)
Quarter: 2025Q2

REPORT INFORMATION
  Report Type: Spontaneous
  Country: US (occurrence: US)
  Receive Date: 20250430
  Receipt Date: 20250430
  Transmission Date: 20250716
  Serious: Yes (Other)
  Sender: COOPERSURGICAL
  Company Number: US-COOPERSURGICAL, INC.-2025CPS003437

PATIENT
  Age: 42 Year
  Sex: Female
  Weight: 101.13 kg

DRUGS (3)
  1. PARAGARD T 380A [Suspect]
     Active Substance: COPPER
     Indication: Contraception
     Route: 015
     Dates: start: 20121217
  2. NP THYROID [Concomitant]
     Active Substance: LEVOTHYROXINE\LIOTHYRONINE
     Dates: start: 2016
  3. LIOTHYRONINE [Concomitant]
     Active Substance: LIOTHYRONINE
     Dates: start: 2016

REACTIONS (19)
  - Hysterectomy [Recovered/Resolved]
  - Uterine leiomyoma [Recovered/Resolved]
  - Deformity [Not Recovered/Not Resolved]
  - Salpingectomy [Recovered/Resolved]
  - Genital labial operation [Recovered/Resolved]
  - Device breakage [Recovered/Resolved]
  - Foreign body in reproductive tract [Recovered/Resolved]
  - Complication of device removal [Recovered/Resolved]
  - Embedded device [Recovered/Resolved]
  - Heavy menstrual bleeding [Recovered/Resolved]
  - Anxiety [Not Recovered/Not Resolved]
  - Emotional distress [Not Recovered/Not Resolved]
  - Procedural pain [Recovered/Resolved]
  - Scar [Not Recovered/Not Resolved]
  - Iron deficiency anaemia [Recovered/Resolved]
  - Infection [Unknown]
  - Abnormal uterine bleeding [Recovered/Resolved]
  - Pain [Not Recovered/Not Resolved]
  - Menstruation irregular [Recovered/Resolved]

NARRATIVE: CASE EVENT DATE: 20200101
